FAERS Safety Report 17418603 (Version 1)
Quarter: 2020Q1

REPORT INFORMATION
  Report Type: Spontaneous
  Country: BE (occurrence: BE)
  Receive Date: 20200214
  Receipt Date: 20200214
  Transmission Date: 20200409
  Serious: Yes (Other)
  Sender: FDA-Public Use
  Company Number: BE-CHEPLA-1844102

PATIENT
  Age: 51 Year
  Sex: Male
  Weight: 88 kg

DRUGS (4)
  1. CYMEVENE [Suspect]
     Active Substance: GANCICLOVIR
     Indication: IMMUNOSUPPRESSION
     Route: 065
     Dates: start: 20160921, end: 20161031
  2. CYMEVENE [Suspect]
     Active Substance: GANCICLOVIR
     Route: 065
     Dates: start: 20161109, end: 20161202
  3. VALCYTE [Suspect]
     Active Substance: VALGANCICLOVIR HYDROCHLORIDE
     Route: 065
     Dates: start: 20161109, end: 20161202
  4. VALCYTE [Suspect]
     Active Substance: VALGANCICLOVIR HYDROCHLORIDE
     Indication: IMMUNOSUPPRESSION
     Route: 065
     Dates: start: 20160921, end: 20161031

REACTIONS (3)
  - Cytomegalovirus infection [Unknown]
  - Cytomegalovirus infection [Unknown]
  - Cytomegalovirus infection [Unknown]

NARRATIVE: CASE EVENT DATE: 20161003
